FAERS Safety Report 7469276-0 (Version None)
Quarter: 2011Q2

REPORT INFORMATION
  Report Type: 
  Country: None (occurrence: None)
  Receive Date: 20110510
  Receipt Date: 20110429
  Transmission Date: 20111010
  Serious: Yes (Hospitalization, Other)
  Sender: FDA-Public Use
  Company Number: US-JNJFOC-20100901277

PATIENT
  Sex: Male

DRUGS (3)
  1. LEVAQUIN [Suspect]
     Indication: URINARY TRACT INFECTION
     Route: 048
  2. CEFAZOLIN [Suspect]
     Indication: PROPHYLAXIS
  3. LEVAQUIN [Suspect]
     Indication: PNEUMONIA
     Route: 048

REACTIONS (11)
  - RENAL DISORDER [None]
  - CYSTITIS NONINFECTIVE [None]
  - PNEUMONIA [None]
  - COLLAPSE OF LUNG [None]
  - HEPATITIS [None]
  - DEPRESSION [None]
  - TOXIC EPIDERMAL NECROLYSIS [None]
  - STEVENS-JOHNSON SYNDROME [None]
  - CONVULSION [None]
  - RESPIRATORY FAILURE [None]
  - ANXIETY [None]
